FAERS Safety Report 23153015 (Version 1)
Quarter: 2023Q4

REPORT INFORMATION
  Report Type: Other
  Country: None (occurrence: JP)
  Receive Date: 20231107
  Receipt Date: 20231107
  Transmission Date: 20240110
  Serious: Yes (Hospitalization)
  Sender: FDA-Public Use
  Company Number: JP-B.Braun Medical Inc.-2147894

PATIENT
  Age: 69 Year
  Sex: Male

DRUGS (5)
  1. HEPARIN SODIUM IN DEXTROSE [Suspect]
     Active Substance: HEPARIN SODIUM
     Indication: Renal vein embolism
  2. PREDNISONE [Concomitant]
     Active Substance: PREDNISONE
  3. TACROLIMUS [Concomitant]
     Active Substance: TACROLIMUS
  4. SULFAMETHOXAZOLE\TRIMETHOPRIM [Concomitant]
     Active Substance: SULFAMETHOXAZOLE\TRIMETHOPRIM
  5. VONOPRAZAN [Concomitant]
     Active Substance: VONOPRAZAN

REACTIONS (1)
  - Drug ineffective [None]
